FAERS Safety Report 7774467-5 (Version None)
Quarter: 2011Q3

REPORT INFORMATION
  Report Type: 
  Country: None (occurrence: None)
  Receive Date: 20110923
  Receipt Date: 20110919
  Transmission Date: 20111222
  Serious: Yes (Other)
  Sender: FDA-Public Use
  Company Number: US-B.I. PHARMACEUTICALS,INC./RIDGEFIELD-2011-BP-22496BP

PATIENT
  Sex: Female

DRUGS (7)
  1. ZOLOFT [Concomitant]
     Indication: DEPRESSION
     Dates: start: 19700101
  2. SIMVASTATIN [Concomitant]
  3. DIGOXIN [Concomitant]
  4. MICARDIS [Suspect]
     Indication: HYPERTENSION
     Dosage: 80 MG
     Route: 048
     Dates: start: 19980101
  5. COUMADIN [Concomitant]
  6. SPIRONOLACTONE [Concomitant]
  7. PACERONE [Concomitant]

REACTIONS (1)
  - MYOCARDIAL INFARCTION [None]
